FAERS Safety Report 23975963 (Version 3)
Quarter: 2024Q3

REPORT INFORMATION
  Report Type: Spontaneous
  Country: JP (occurrence: JP)
  Receive Date: 20240614
  Receipt Date: 20240729
  Transmission Date: 20241017
  Serious: Yes (Other)
  Sender: AMGEN
  Company Number: JP-DSJP-DSJ-2024-124609

PATIENT
  Age: 75 Year
  Sex: Female

DRUGS (8)
  1. DENOSUMAB [Suspect]
     Active Substance: DENOSUMAB
     Indication: Osteoporosis
     Dosage: 60 MILLIGRAM, Q6MO
     Route: 058
     Dates: start: 20180104, end: 20220820
  2. MIROGABALIN BESYLATE [Concomitant]
     Active Substance: MIROGABALIN BESYLATE
     Indication: Product used for unknown indication
     Dosage: UNK
     Route: 048
  3. ACOTIAMIDE HYDROCHLORIDE [Concomitant]
     Active Substance: ACOTIAMIDE HYDROCHLORIDE
     Indication: Product used for unknown indication
     Dosage: UNK
     Route: 048
  4. IGURATIMOD [Concomitant]
     Active Substance: IGURATIMOD
     Indication: Product used for unknown indication
     Dosage: UNK
     Route: 048
  5. ELDECALCITOL [Concomitant]
     Active Substance: ELDECALCITOL
     Indication: Product used for unknown indication
     Dosage: UNK
     Route: 048
  6. VONOPRAZAN FUMARATE [Concomitant]
     Active Substance: VONOPRAZAN FUMARATE
     Indication: Product used for unknown indication
     Dosage: UNK
     Route: 048
  7. AMLODIPINE [Concomitant]
     Active Substance: AMLODIPINE BESYLATE
     Indication: Product used for unknown indication
     Dosage: UNK
     Route: 048
  8. CARBIMAZOLE [Concomitant]
     Active Substance: CARBIMAZOLE
     Indication: Product used for unknown indication
     Dosage: UNK
     Route: 048

REACTIONS (1)
  - Lumbar vertebral fracture [Recovered/Resolved]

NARRATIVE: CASE EVENT DATE: 20240220
